FAERS Safety Report 18517830 (Version 2)
Quarter: 2020Q4

REPORT INFORMATION
  Report Type: Spontaneous
  Country: US (occurrence: US)
  Receive Date: 20201118
  Receipt Date: 20201216
  Transmission Date: 20210114
  Serious: No
  Sender: FDA-Public Use
  Company Number: US-PFIZER INC-2020452565

PATIENT
  Age: 62 Year
  Sex: Female

DRUGS (1)
  1. XELJANZ [Suspect]
     Active Substance: TOFACITINIB CITRATE
     Indication: RHEUMATOID ARTHRITIS
     Dosage: 5 MG, DAILY
     Route: 048
     Dates: start: 20201021, end: 20201201

REACTIONS (4)
  - Off label use [Unknown]
  - Sinus congestion [Unknown]
  - Migraine [Unknown]
  - Sinus headache [Unknown]

NARRATIVE: CASE EVENT DATE: 20201021
